FAERS Safety Report 9519584 (Version 2)
Quarter: 2013Q3

REPORT INFORMATION
  Report Type: Spontaneous
  Country: US (occurrence: US)
  Receive Date: 20130912
  Receipt Date: 20130926
  Transmission Date: 20140515
  Serious: Yes (Hospitalization)
  Sender: FDA-Public Use
  Company Number: US-009507513-1309USA001581

PATIENT
  Sex: Female

DRUGS (3)
  1. MIRALAX [Suspect]
     Indication: PRODUCT USED FOR UNKNOWN INDICATION
     Dosage: UNK
     Route: 048
     Dates: start: 201303
  2. BAYER ASPIRIN [Concomitant]
     Indication: ATRIAL FIBRILLATION
     Dosage: 25 MG, TID
     Route: 048
  3. CARDIZEM [Concomitant]
     Indication: ATRIAL FIBRILLATION
     Dosage: 340 MG, QD
     Route: 048

REACTIONS (3)
  - Atrial fibrillation [Unknown]
  - Overdose [Unknown]
  - Drug ineffective [Unknown]
